FAERS Safety Report 8833862 (Version 1)
Quarter: 2012Q4

REPORT INFORMATION
  Report Type: 
  Country: US (occurrence: None)
  Receive Date: 20121010
  Receipt Date: 20121010
  Transmission Date: 20130627
  Serious: Yes (Hospitalization)
  Sender: FDA-Public Use
  Company Number: None

PATIENT
  Sex: Male
  Weight: 69 kg

DRUGS (2)
  1. CYCLOPHOSPHAMIDE [Suspect]
  2. FLUDARABINE PHOSPHATE [Suspect]

REACTIONS (10)
  - Lung adenocarcinoma stage I [None]
  - Chronic lymphocytic leukaemia [None]
  - Malignant neoplasm progression [None]
  - Refractory anaemia with ringed sideroblasts [None]
  - Pneumonia [None]
  - Myelodysplastic syndrome [None]
  - Treatment failure [None]
  - Performance status decreased [None]
  - Infection [None]
  - Respiratory failure [None]
